FAERS Safety Report 4783193-6 (Version None)
Quarter: 2005Q3

REPORT INFORMATION
  Report Type: 
  Country: None (occurrence: None)
  Receive Date: 20050929
  Receipt Date: 20050914
  Transmission Date: 20060218
  Serious: Yes (Hospitalization)
  Sender: FDA-Public Use
  Company Number: 2005GB01656

PATIENT
  Age: 68 Year
  Sex: Male
  Weight: 85 kg

DRUGS (4)
  1. SEROQUEL [Suspect]
     Indication: BIPOLAR DISORDER
     Dosage: 3G SINGLE DOSE
     Route: 048
     Dates: start: 20050804, end: 20050804
  2. PARACETAMOL [Suspect]
     Dosage: 15G SINGLE DOSE
     Route: 048
     Dates: start: 20050804, end: 20050804
  3. PAROXETINE [Suspect]
     Dosage: 600MG SINGLE DOSE
     Route: 048
     Dates: start: 20050804, end: 20050804
  4. ALCOHOL [Suspect]
     Route: 048
     Dates: start: 20050804, end: 20050804

REACTIONS (2)
  - HYPERKALAEMIA [None]
  - OVERDOSE [None]
